FAERS Safety Report 7121460-1 (Version None)
Quarter: 2010Q4

REPORT INFORMATION
  Report Type: 
  Country: None (occurrence: None)
  Receive Date: 20101119
  Receipt Date: 20101119
  Transmission Date: 20110411
  Serious: No
  Sender: FDA-Public Use
  Company Number: None

PATIENT
  Sex: Male
  Weight: 117.03 kg

DRUGS (2)
  1. CARBOPLATIN [Suspect]
     Dosage: 675 MG
     Dates: end: 20101026
  2. TAXOL [Suspect]
     Dosage: 351 MG
     Dates: end: 20101026

REACTIONS (1)
  - NEUTROPENIA [None]
